FAERS Safety Report 10058286 (Version 1)
Quarter: 2014Q2

REPORT INFORMATION
  Report Type: Spontaneous
  Country: US (occurrence: None)
  Receive Date: 20140403
  Receipt Date: 20140403
  Transmission Date: 20141212
  Serious: Yes (Hospitalization)
  Sender: FDA-Public Use
  Company Number: None

PATIENT
  Age: 76 Year
  Sex: Male
  Weight: 90.18 kg

DRUGS (43)
  1. 5-FLUOROURACIL [Suspect]
     Dates: end: 20111129
  2. BEVACIZUMAB [Suspect]
     Dates: end: 20111129
  3. IRINOTECAN [Suspect]
     Dates: end: 20111129
  4. LEUCOVORIN [Suspect]
     Dates: end: 20111129
  5. PROCHLORPERAZINE [Concomitant]
  6. LORAZEPAM [Concomitant]
  7. IRBESARTAN [Concomitant]
  8. ATORVASTATIN [Concomitant]
  9. ASPIRIN [Concomitant]
  10. AMLODIPINE [Concomitant]
  11. CARVEDILOL [Concomitant]
  12. PROMETHAZINE [Concomitant]
  13. MAGNESIUM HYDROXIDE [Concomitant]
  14. SIMETHICONE [Concomitant]
  15. NITROGLYCERIN [Concomitant]
  16. COENZYME [Concomitant]
  17. CHOLECALCIFEROL [Concomitant]
  18. ALUM-MAG HYDROXIDE-SIMETH [Concomitant]
  19. NYSTATIN [Concomitant]
  20. OXYCODONE-ACETAMINOPHEN [Concomitant]
  21. TEMAZEPAM [Concomitant]
  22. CEFEPIME [Concomitant]
  23. LEVOFLOXACIN [Concomitant]
  24. ONDANSETRON [Concomitant]
  25. PROMETHAZINE [Concomitant]
  26. OXYGEN [Concomitant]
  27. IV FLUIDS [Concomitant]
  28. MULTIPLE VITAMIN [Concomitant]
  29. SIMETHICONE [Concomitant]
  30. NITROGLYCERIN [Concomitant]
  31. COENZYME Q10 [Concomitant]
  32. CHOLECALCIFEROL [Concomitant]
  33. ACETAMINOPHEN [Concomitant]
  34. IPRATROPIUM-ALBUTEROL [Concomitant]
  35. ALPRAZOLAM [Concomitant]
  36. AMLODIPINE [Concomitant]
  37. ASPIRIN [Concomitant]
  38. CARVEDILOL [Concomitant]
  39. DIPHENOXY-ATROPINE [Concomitant]
  40. ENOXAPARIN [Concomitant]
  41. FAMOTIDINE [Concomitant]
  42. FILGRASTIM [Concomitant]
  43. ACIDOPHILUS-PECTIN [Concomitant]

REACTIONS (7)
  - Diarrhoea [None]
  - Syncope [None]
  - Fatigue [None]
  - Dehydration [None]
  - Leukopenia [None]
  - Neutropenia [None]
  - Dizziness [None]
